FAERS Safety Report 24043560 (Version 1)
Quarter: 2024Q3

REPORT INFORMATION
  Report Type: Spontaneous
  Country: US (occurrence: US)
  Receive Date: 20240703
  Receipt Date: 20240703
  Transmission Date: 20241017
  Serious: Yes (Hospitalization)
  Sender: BEIGENE
  Company Number: US-ABBVIE-4213959

PATIENT

DRUGS (7)
  1. BRUKINSA [Suspect]
     Active Substance: ZANUBRUTINIB
     Indication: Chronic lymphocytic leukaemia
  2. DUPIXENT [Suspect]
     Active Substance: DUPILUMAB
     Indication: Product used for unknown indication
  3. DUPIXENT [Suspect]
     Active Substance: DUPILUMAB
     Indication: COVID-19 immunisation
  4. VENCLEXTA [Suspect]
     Active Substance: VENETOCLAX
     Indication: Chronic lymphocytic leukaemia
  5. PREVNAR 20 [Concomitant]
     Active Substance: PNEUMOCOCCAL 20-VALENT CONJUGATE VACCINE
  6. NEULASTA [Concomitant]
     Active Substance: PEGFILGRASTIM
  7. NEUPOGEN [Concomitant]
     Active Substance: FILGRASTIM

REACTIONS (27)
  - Febrile neutropenia [Unknown]
  - White blood cell count decreased [Unknown]
  - Constipation [Unknown]
  - Platelet count decreased [Unknown]
  - Increased tendency to bruise [Unknown]
  - Malaise [Unknown]
  - Injection site erythema [Unknown]
  - Fungal infection [Unknown]
  - Cataract [Unknown]
  - Petechiae [Unknown]
  - Dyspepsia [Unknown]
  - Pyrexia [Unknown]
  - Immunosuppression [Unknown]
  - Eczema [Unknown]
  - COVID-19 [Unknown]
  - Nausea [Unknown]
  - Haemoglobin decreased [Unknown]
  - Chest discomfort [Unknown]
  - Neutrophil count decreased [Unknown]
  - Diarrhoea [Unknown]
  - Fatigue [Unknown]
  - Red blood cell count decreased [Unknown]
  - Nasopharyngitis [Unknown]
  - Headache [Unknown]
  - Asthenia [Unknown]
  - Somnolence [Unknown]
  - Contusion [Unknown]

NARRATIVE: CASE EVENT DATE: 20230101
